FAERS Safety Report 11881219 (Version 3)
Quarter: 2016Q1

REPORT INFORMATION
  Report Type: Report from Study
  Country: US (occurrence: US)
  Receive Date: 20151231
  Receipt Date: 20160219
  Transmission Date: 20160526
  Serious: No
  Sender: FDA-Public Use
  Company Number: PHEH2015US027348

PATIENT
  Age: 23 Year
  Sex: Female
  Weight: 240 kg

DRUGS (3)
  1. ILARIS [Suspect]
     Active Substance: CANAKINUMAB
     Dosage: Q 30 DAYS
     Route: 058
     Dates: start: 2015
  2. ILARIS [Suspect]
     Active Substance: CANAKINUMAB
     Dosage: Q4 WEEKS
     Route: 065
     Dates: start: 20151125
  3. ILARIS [Suspect]
     Active Substance: CANAKINUMAB
     Dosage: 300 MG, Q4 WEEKS
     Route: 058

REACTIONS (3)
  - Inappropriate schedule of drug administration [Unknown]
  - Pyrexia [Unknown]
  - Upper respiratory tract infection [Recovered/Resolved]

NARRATIVE: CASE EVENT DATE: 20151228
